FAERS Safety Report 7825236-9 (Version None)
Quarter: 2011Q4

REPORT INFORMATION
  Report Type: 
  Country: None (occurrence: None)
  Receive Date: 20111019
  Receipt Date: 20111012
  Transmission Date: 20120403
  Serious: Yes (Hospitalization)
  Sender: FDA-Public Use
  Company Number: US-GLAXOSMITHKLINE-A0845702A

PATIENT
  Age: 59 Year
  Sex: Female
  Weight: 142 kg

DRUGS (13)
  1. INSULIN [Concomitant]
  2. NEURONTIN [Concomitant]
  3. MINOCYCLINE HCL [Concomitant]
  4. LIPITOR [Concomitant]
  5. ACTOS [Concomitant]
     Dates: start: 20021218
  6. PROCARDIA [Concomitant]
  7. PREVACID [Concomitant]
  8. ATENOLOL [Concomitant]
  9. GLUCOPHAGE [Concomitant]
     Dates: end: 20021218
  10. VIOXX [Concomitant]
  11. AVANDIA [Suspect]
     Indication: DIABETES MELLITUS
     Dosage: 4MG PER DAY
     Route: 048
     Dates: start: 20000101, end: 20021218
  12. EVISTA [Concomitant]
  13. LISINOPRIL [Concomitant]

REACTIONS (3)
  - CARDIAC FAILURE CONGESTIVE [None]
  - CARDIOMYOPATHY [None]
  - PULMONARY HYPERTENSION [None]
